FAERS Safety Report 21912281 (Version 1)
Quarter: 2023Q1

REPORT INFORMATION
  Report Type: Spontaneous
  Country: US (occurrence: US)
  Receive Date: 20230125
  Receipt Date: 20230125
  Transmission Date: 20230417
  Serious: No
  Sender: FDA-Public Use
  Company Number: US-ALLERGAN-2235357US

PATIENT
  Age: 76 Year
  Sex: Female

DRUGS (21)
  1. BOTOX [Suspect]
     Active Substance: ONABOTULINUMTOXINA
     Indication: Migraine
     Dosage: UNK, SINGLE
     Dates: start: 202210, end: 202210
  2. CARAFATE [Concomitant]
     Active Substance: SUCRALFATE
  3. OMEPRAZOLE [Concomitant]
     Active Substance: OMEPRAZOLE
  4. VITAMINS [Concomitant]
     Active Substance: VITAMINS
  5. AIMOVIG [Concomitant]
     Active Substance: ERENUMAB-AOOE
  6. LIPITOR [Concomitant]
     Active Substance: ATORVASTATIN CALCIUM
  7. METOPROLOL [Concomitant]
     Active Substance: METOPROLOL
  8. ELIQUIS [Concomitant]
     Active Substance: APIXABAN
  9. ASPIRIN [Concomitant]
     Active Substance: ASPIRIN
  10. METROGEL [Concomitant]
     Active Substance: METRONIDAZOLE
  11. FOSAMAX [Concomitant]
     Active Substance: ALENDRONATE SODIUM
  12. COLCHICINE [Concomitant]
     Active Substance: COLCHICINE
  13. FLOVENT [Concomitant]
     Active Substance: FLUTICASONE PROPIONATE
  14. FLONASE [Concomitant]
     Active Substance: FLUTICASONE PROPIONATE
  15. VITAMIN D3 [Concomitant]
     Active Substance: CHOLECALCIFEROL
  16. HYPROMELLOSES [Concomitant]
     Active Substance: HYPROMELLOSES
  17. FERGON [Concomitant]
     Active Substance: FERROUS GLUCONATE
  18. HYDROCORTISONE ACETATE [Concomitant]
     Active Substance: HYDROCORTISONE ACETATE
  19. PERCOCET [Concomitant]
     Active Substance: ACETAMINOPHEN\OXYCODONE HYDROCHLORIDE
  20. SYNTHROID [Concomitant]
     Active Substance: LEVOTHYROXINE SODIUM
  21. Systane OP eye drops [Concomitant]

REACTIONS (1)
  - Diplopia [Unknown]

NARRATIVE: CASE EVENT DATE: 20221001
